FAERS Safety Report 18642950 (Version 3)
Quarter: 2021Q1

REPORT INFORMATION
  Report Type: Spontaneous
  Country: CA (occurrence: CA)
  Receive Date: 20201221
  Receipt Date: 20210128
  Transmission Date: 20210419
  Serious: Yes (Hospitalization)
  Sender: FDA-Public Use
  Company Number: CA-UNITED THERAPEUTICS-UNT-2020-015825

PATIENT
  Age: 66 Year
  Sex: Female

DRUGS (6)
  1. REMODULIN [Suspect]
     Active Substance: TREPROSTINIL
     Indication: PULMONARY ARTERIAL HYPERTENSION
     Dosage: UNK, CONTINUING
     Route: 058
     Dates: start: 20200928
  2. REMODULIN [Suspect]
     Active Substance: TREPROSTINIL
     Dosage: 0.032 ?G/KG, CONTINUING
     Route: 058
     Dates: start: 2020
  3. REMODULIN [Suspect]
     Active Substance: TREPROSTINIL
     Dosage: 0.0502 ?G/KG, CONTINUING
     Route: 058
     Dates: start: 2020
  4. REMODULIN [Suspect]
     Active Substance: TREPROSTINIL
     Dosage: 0.0479 ?G/KG, CONTINUING
     Route: 058
     Dates: start: 2020
  5. REMODULIN [Suspect]
     Active Substance: TREPROSTINIL
     Dosage: 0.0365 ?G/KG, CONTINUING
     Route: 058
     Dates: start: 20201005
  6. REMODULIN [Suspect]
     Active Substance: TREPROSTINIL
     Dosage: 0.016 ?G/KG, CONTINUING
     Route: 058
     Dates: start: 20210101, end: 20210124

REACTIONS (13)
  - Disease progression [Not Recovered/Not Resolved]
  - Diarrhoea [Not Recovered/Not Resolved]
  - Infusion site erythema [Not Recovered/Not Resolved]
  - Anal incontinence [Not Recovered/Not Resolved]
  - Anxiety [Not Recovered/Not Resolved]
  - Urinary incontinence [Recovered/Resolved]
  - Oxygen consumption increased [Not Recovered/Not Resolved]
  - Bone pain [Not Recovered/Not Resolved]
  - Syncope [Recovered/Resolved]
  - Dyspnoea [Not Recovered/Not Resolved]
  - General physical health deterioration [Not Recovered/Not Resolved]
  - Headache [Not Recovered/Not Resolved]
  - Pain in jaw [Not Recovered/Not Resolved]

NARRATIVE: CASE EVENT DATE: 2020
